FAERS Safety Report 11595604 (Version 1)
Quarter: 2015Q4

REPORT INFORMATION
  Report Type: Spontaneous
  Country: US (occurrence: None)
  Receive Date: 20151005
  Receipt Date: 20151005
  Transmission Date: 20160304
  Serious: Yes (Death, Hospitalization)
  Sender: FDA-Public Use
  Company Number: None

PATIENT
  Age: 66 Year
  Sex: Female
  Weight: 59.24 kg

DRUGS (3)
  1. CARBOPLATIN? [Suspect]
     Active Substance: CARBOPLATIN
     Indication: SQUAMOUS CELL CARCINOMA OF HEAD AND NECK
     Route: 042
     Dates: start: 20150603, end: 20150916
  2. ABRAXANE [Suspect]
     Active Substance: PACLITAXEL
  3. CETUXIMAB 250MG/M2 [Suspect]
     Active Substance: CETUXIMAB
     Indication: SQUAMOUS CELL CARCINOMA
     Route: 042
     Dates: start: 20150603, end: 20150916

REACTIONS (14)
  - Device malfunction [None]
  - Cough [None]
  - Device related infection [None]
  - Febrile neutropenia [None]
  - Colitis ischaemic [None]
  - Fall [None]
  - Blood pressure systolic decreased [None]
  - Dehydration [None]
  - Sepsis [None]
  - Epiglottic oedema [None]
  - Septic shock [None]
  - Platelet count decreased [None]
  - Respiratory failure [None]
  - Infectious colitis [None]

NARRATIVE: CASE EVENT DATE: 20150922
